FAERS Safety Report 11442714 (Version 3)
Quarter: 2015Q4

REPORT INFORMATION
  Report Type: Spontaneous
  Country: US (occurrence: US)
  Receive Date: 20150901
  Receipt Date: 20151231
  Transmission Date: 20160304
  Serious: Yes (Hospitalization)
  Sender: FDA-Public Use
  Company Number: US-PFIZER INC-2015285798

PATIENT
  Age: 84 Year
  Sex: Male

DRUGS (4)
  1. IPRATROPIUM BROMIDE. [Concomitant]
     Active Substance: IPRATROPIUM BROMIDE
     Dosage: UNK
     Dates: start: 201505
  2. FLUTICASONE PROPIONATE. [Concomitant]
     Active Substance: FLUTICASONE PROPIONATE
     Dosage: UNK
     Dates: start: 2012
  3. CENTRUM SILVER [Suspect]
     Active Substance: MINERALS\VITAMINS
     Dosage: UNK
  4. AZITHROMYCIN [Suspect]
     Active Substance: AZITHROMYCIN ANHYDROUS
     Indication: HELICOBACTER INFECTION
     Dosage: UNK
     Dates: start: 1997

REACTIONS (4)
  - Musculoskeletal discomfort [Not Recovered/Not Resolved]
  - Cardiac disorder [Recovered/Resolved]
  - Pruritus [Not Recovered/Not Resolved]
  - Rash erythematous [Not Recovered/Not Resolved]

NARRATIVE: CASE EVENT DATE: 2007
